FAERS Safety Report 22229006 (Version 1)
Quarter: 2023Q2

REPORT INFORMATION
  Report Type: Spontaneous
  Country: US (occurrence: None)
  Receive Date: 20230418
  Receipt Date: 20230418
  Transmission Date: 20230721
  Serious: Yes (Hospitalization)
  Sender: FDA-Public Use
  Company Number: None

PATIENT
  Age: 79 Year
  Sex: Male
  Weight: 81.65 kg

DRUGS (13)
  1. CAPECITABINE [Suspect]
     Active Substance: CAPECITABINE
     Indication: Rectal cancer
     Dosage: 1000-500MG TWICE DAILY ORAL
     Route: 048
     Dates: start: 202210, end: 20230418
  2. ATORVASTATIN [Concomitant]
     Active Substance: ATORVASTATIN
  3. BISMATROL [Concomitant]
     Active Substance: BISMUTH SUBSALICYLATE
  4. CITALOPRAM [Concomitant]
     Active Substance: CITALOPRAM HYDROBROMIDE
  5. DOXAZOSIN [Concomitant]
     Active Substance: DOXAZOSIN MESYLATE
  6. GAS-X [Concomitant]
     Active Substance: DIMETHICONE
  7. OMEPRAZOLE [Concomitant]
     Active Substance: OMEPRAZOLE
  8. IRON\VITAMINS [Concomitant]
     Active Substance: IRON\VITAMINS
  9. PEPTO-BISMOL [Concomitant]
     Active Substance: BISMUTH SUBSALICYLATE
  10. TRAZODONE [Concomitant]
     Active Substance: TRAZODONE HYDROCHLORIDE
  11. TRIAMTERENE [Concomitant]
     Active Substance: TRIAMTERENE
  12. TYLENOL [Concomitant]
     Active Substance: ACETAMINOPHEN
  13. VALTREX [Concomitant]
     Active Substance: VALACYCLOVIR HYDROCHLORIDE

REACTIONS (1)
  - Hospitalisation [None]
